FAERS Safety Report 6470513-X (Version None)
Quarter: 2009Q4

REPORT INFORMATION
  Report Type: 
  Country: None (occurrence: None)
  Receive Date: 20091203
  Receipt Date: 20091124
  Transmission Date: 20100525
  Serious: Yes (Hospitalization)
  Sender: FDA-Public Use
  Company Number: JP-JNJFOC-20091005408

PATIENT
  Sex: Female
  Weight: 98 kg

DRUGS (9)
  1. DOXORUBICIN HCL [Suspect]
     Dosage: CYCLE 2
     Route: 042
     Dates: start: 20090729, end: 20090902
  2. DOXORUBICIN HCL [Suspect]
     Indication: OVARIAN CANCER RECURRENT
     Dosage: CYCLE 1
     Route: 042
     Dates: start: 20090729, end: 20090902
  3. ASPIRIN [Concomitant]
     Route: 048
  4. PLETAL [Concomitant]
     Route: 048
  5. WARFARIN SODIUM [Concomitant]
     Route: 048
  6. PAXIL [Concomitant]
     Route: 048
  7. LAMISIL [Concomitant]
     Route: 048
  8. GRANISETRON HCL [Concomitant]
     Indication: PROPHYLAXIS
     Route: 042
  9. DECADRON [Concomitant]
     Indication: PROPHYLAXIS
     Route: 042

REACTIONS (2)
  - LYMPHOEDEMA [None]
  - VENOUS THROMBOSIS LIMB [None]
